FAERS Safety Report 12392119 (Version 1)
Quarter: 2016Q2

REPORT INFORMATION
  Report Type: Report from Study
  Country: HK (occurrence: HK)
  Receive Date: 20160523
  Receipt Date: 20160523
  Transmission Date: 20160815
  Serious: Yes (Other)
  Sender: FDA-Public Use
  Company Number: HK-ROCHE-1759252

PATIENT

DRUGS (1)
  1. PEG-INTERFERON ALFA 2A [Suspect]
     Active Substance: PEGINTERFERON ALFA-2A
     Indication: CHRONIC HEPATITIS B
     Route: 065

REACTIONS (16)
  - Hyperbilirubinaemia [Unknown]
  - Arthralgia [Unknown]
  - Myalgia [Unknown]
  - Dizziness [Unknown]
  - Haemoglobin decreased [Unknown]
  - Alanine aminotransferase increased [Unknown]
  - Headache [Unknown]
  - Depression [Unknown]
  - Insomnia [Unknown]
  - Aspartate aminotransferase increased [Unknown]
  - Back pain [Unknown]
  - Thrombocytopenia [Unknown]
  - Influenza like illness [Unknown]
  - Irritability [Unknown]
  - Neutropenia [Unknown]
  - Fatigue [Unknown]
